FAERS Safety Report 18549618 (Version 1)
Quarter: 2020Q4

REPORT INFORMATION
  Report Type: Report from Study
  Country: AU (occurrence: AU)
  Receive Date: 20201126
  Receipt Date: 20201126
  Transmission Date: 20210114
  Serious: Yes (Other)
  Sender: FDA-Public Use
  Company Number: AU-SUN PHARMACEUTICAL INDUSTRIES LTD-2020R1-268940

PATIENT
  Sex: Male

DRUGS (2)
  1. CLONAZEPAM. [Suspect]
     Active Substance: CLONAZEPAM
     Indication: EPILEPSY
     Dosage: 0.25 MILLIGRAM, DAILY
     Route: 064
  2. VALPROIC ACID. [Suspect]
     Active Substance: VALPROIC ACID
     Indication: EPILEPSY
     Dosage: 800 MILLIGRAM, DAILY
     Route: 064

REACTIONS (2)
  - Hypospadias [Unknown]
  - Foetal exposure during pregnancy [Unknown]
